FAERS Safety Report 16478201 (Version 1)
Quarter: 2019Q2

REPORT INFORMATION
  Report Type: Spontaneous
  Country: US (occurrence: US)
  Receive Date: 20190626
  Receipt Date: 20190626
  Transmission Date: 20190711
  Serious: No
  Sender: FDA-Public Use
  Company Number: US-TEVA-2019-US-1058656

PATIENT
  Sex: Female

DRUGS (2)
  1. MICON  2% [Suspect]
     Active Substance: MICONAZOLE
     Indication: FUNGAL INFECTION
     Dates: start: 20190519, end: 201905
  2. MICON  2% [Suspect]
     Active Substance: MICONAZOLE
     Dates: start: 20190528, end: 20190529

REACTIONS (1)
  - Vaginal haemorrhage [Unknown]

NARRATIVE: CASE EVENT DATE: 20190524
